FAERS Safety Report 7292579-X (Version None)
Quarter: 2011Q1

REPORT INFORMATION
  Report Type: 
  Country: None (occurrence: None)
  Receive Date: 20110215
  Receipt Date: 20110215
  Transmission Date: 20110831
  Serious: Yes (Other)
  Sender: FDA-Public Use
  Company Number: None

PATIENT
  Age: 46 Year
  Sex: Female
  Weight: 117.028 kg

DRUGS (1)
  1. ALCOHOL PADS TRIAD [Suspect]
     Dosage: PT ON IV VELETRI, USES ALCOHOL PADS WITH THERAPY

REACTIONS (5)
  - PRODUCT QUALITY ISSUE [None]
  - NAUSEA [None]
  - ERYTHEMA [None]
  - DECREASED APPETITE [None]
  - FATIGUE [None]
